FAERS Safety Report 5345066-X (Version None)
Quarter: 2007Q2

REPORT INFORMATION
  Report Type: 
  Country: None (occurrence: None)
  Receive Date: 20070426
  Receipt Date: 20070206
  Transmission Date: 20071010
  Serious: Yes (Hospitalization)
  Sender: FDA-Public Use
  Company Number: 2007007598

PATIENT
  Age: 12 Year
  Sex: Male
  Weight: 28 kg

DRUGS (1)
  1. GENOTROPIN [Suspect]
     Indication: HYPOPITUITARISM
     Dosage: 1.2 MG (1.2 MG,1 IN 1 D),SUBCUTANEOUS
     Route: 058
     Dates: start: 20061101, end: 20070101

REACTIONS (1)
  - BLOOD GLUCOSE INCREASED [None]
